FAERS Safety Report 16539055 (Version 1)
Quarter: 2019Q3

REPORT INFORMATION
  Report Type: Spontaneous
  Country: US (occurrence: US)
  Receive Date: 20190705
  Receipt Date: 20190705
  Transmission Date: 20191004
  Serious: Yes (Other)
  Sender: FDA-Public Use
  Company Number: None

PATIENT
  Age: 66 Year
  Sex: Female
  Weight: 51.75 kg

DRUGS (8)
  1. LISINOPRIL. [Concomitant]
     Active Substance: LISINOPRIL
  2. ACIDOPHOLUS [Concomitant]
  3. BIOTIN [Concomitant]
     Active Substance: BIOTIN
  4. FLOUROURACIL 5% [Suspect]
     Active Substance: FLUOROURACIL SODIUM
     Indication: PRECANCEROUS SKIN LESION
     Dosage: ?          OTHER STRENGTH:UNKNOWN;QUANTITY:1 SMALL AMOUNT;?
     Route: 061
     Dates: start: 20190418, end: 20190428
  5. ESTRADIOL/NORETHINNDRONE [Concomitant]
  6. CALCIUM [Concomitant]
     Active Substance: CALCIUM
  7. MULTI VITAMINS [Concomitant]
     Active Substance: VITAMINS
  8. VITAMIN B COMPLEX [Concomitant]
     Active Substance: CYANOCOBALAMIN\DEXPANTHENOL\NIACINAMIDE\PYRIDOXINE HYDROCHLORIDE\RIBOFLAVIN 5^-PHOSPHATE SODIUM\THIAMINE HYDROCHLORIDE\VITAMIN B COMPLEX

REACTIONS (6)
  - Skin lesion [None]
  - Drug intolerance [None]
  - Alopecia [None]
  - Administration related reaction [None]
  - Pain [None]
  - Hair texture abnormal [None]

NARRATIVE: CASE EVENT DATE: 20190508
